FAERS Safety Report 9042357 (Version 1)
Quarter: 2013Q1

REPORT INFORMATION
  Report Type: Report from Study
  Country: US (occurrence: US)
  Receive Date: 20130129
  Receipt Date: 20130129
  Transmission Date: 20140127
  Serious: No
  Sender: FDA-Public Use
  Company Number: US-ABBOTT-12P-163-0909095-00

PATIENT
  Age: 76 Year
  Sex: Female

DRUGS (13)
  1. HUMIRA 40 MG/0.8 ML PEN [Suspect]
     Indication: PSORIASIS
     Dates: start: 2009
  2. SYNTHROID [Concomitant]
     Indication: THYROID DISORDER
     Dosage: 0.1 MG EVERY DAY
  3. LOSARTAN [Concomitant]
     Indication: PRODUCT USED FOR UNKNOWN INDICATION
     Dosage: 100 MG EVERY DAY
  4. HYDROCHLOORTHIAZIDE [Concomitant]
     Indication: PRODUCT USED FOR UNKNOWN INDICATION
     Dosage: 25 MG EVERY DAY
  5. AMLODIPINE [Concomitant]
     Indication: PRODUCT USED FOR UNKNOWN INDICATION
     Dosage: 2.5 MG EVERY DAY
  6. ASACOL [Concomitant]
     Indication: PRODUCT USED FOR UNKNOWN INDICATION
     Dosage: 400 MG X 6 PILLS EVERY DAY
  7. CELEBREX [Concomitant]
     Indication: PRODUCT USED FOR UNKNOWN INDICATION
     Dosage: 200 MG EVERY DAY
  8. GLIPIZIDE [Concomitant]
     Indication: PRODUCT USED FOR UNKNOWN INDICATION
  9. METFORMIN [Concomitant]
     Indication: PRODUCT USED FOR UNKNOWN INDICATION
  10. LORATADINE [Concomitant]
     Indication: ALLERGY PROPHYLAXIS
  11. VITAMIN C [Concomitant]
     Indication: SUPPLEMENTATION THERAPY
     Dosage: EVERY DAY
  12. CALCIUM [Concomitant]
     Indication: SUPPLEMENTATION THERAPY
     Dosage: EVERY DAY
  13. PENNSAID TOPICAL 1.5% SOLUTION [Concomitant]
     Indication: PSORIASIS
     Dosage: APPROXIMATELY 1-2 TIMES A WEEK

REACTIONS (4)
  - Injection site pain [Not Recovered/Not Resolved]
  - Incorrect route of drug administration [Unknown]
  - Injection site urticaria [Unknown]
  - Injection site haemorrhage [Unknown]
